APPROVED DRUG PRODUCT: ACYCLOVIR
Active Ingredient: ACYCLOVIR
Strength: 200MG
Dosage Form/Route: CAPSULE;ORAL
Application: A074975 | Product #001
Applicant: RANBAXY LABORATORIES LTD
Approved: Sep 30, 1998 | RLD: No | RS: No | Type: DISCN